FAERS Safety Report 9200015 (Version 1)
Quarter: 2013Q1

REPORT INFORMATION
  Report Type: Spontaneous
  Country: US (occurrence: US)
  Receive Date: 20130329
  Receipt Date: 20130329
  Transmission Date: 20140127
  Serious: Yes (Other)
  Sender: FDA-Public Use
  Company Number: US-GLAXOSMITHKLINE-A1017907A

PATIENT
  Sex: Female

DRUGS (1)
  1. LAMICTAL [Suspect]
     Indication: AFFECTIVE DISORDER
     Route: 065
     Dates: start: 20130303, end: 20130306

REACTIONS (15)
  - Meningitis aseptic [Unknown]
  - Malaise [Unknown]
  - Nausea [Unknown]
  - Vomiting [Unknown]
  - Headache [Recovered/Resolved]
  - Musculoskeletal stiffness [Recovered/Resolved]
  - Neck pain [Unknown]
  - Dizziness [Unknown]
  - Confusional state [Unknown]
  - Chills [Unknown]
  - Tremor [Unknown]
  - Erythema [Unknown]
  - Blood pressure increased [Unknown]
  - Photophobia [Not Recovered/Not Resolved]
  - Vertigo [Unknown]
